FAERS Safety Report 4702606-9 (Version None)
Quarter: 2005Q2

REPORT INFORMATION
  Report Type: 
  Country: None (occurrence: None)
  Receive Date: 20050629
  Receipt Date: 20010827
  Transmission Date: 20051028
  Serious: Yes (Hospitalization)
  Sender: FDA-Public Use
  Company Number: 10969699

PATIENT
  Age: 24 Hour
  Sex: Male
  Weight: 4 kg

DRUGS (13)
  1. ZERIT [Suspect]
     Dosage: THERAPY FROM WEEK 2 OF GESTATION TO DELIVERY
     Route: 064
     Dates: start: 20000106, end: 20000915
  2. ZERIT [Suspect]
     Route: 048
     Dates: start: 20000915, end: 20001103
  3. EPIVIR [Suspect]
     Dosage: THERAPY FROM WEEK 2 OF GESTATION TO DELIVERY
     Route: 064
     Dates: start: 20000106, end: 20000915
  4. NORVIR [Suspect]
     Dosage: THERAPY FROM WEEK 2 OF GESTATION TO DELIVERY
     Route: 064
     Dates: start: 20000106, end: 20000915
  5. INVIRASE [Suspect]
     Dosage: THERAPY FROM WEEK 2 OF GESTATION TO DELIVERY
     Route: 064
     Dates: start: 20000106, end: 20000915
  6. RETROVIR [Suspect]
     Dosage: MOTHER RECEIVED INFUSION DURING DELIVERY
     Route: 064
     Dates: start: 20000915, end: 20000915
  7. SPASFON [Concomitant]
  8. IRON [Concomitant]
  9. ZOVIRAX [Concomitant]
  10. AMOXICILLIN [Concomitant]
  11. NETROMYCIN [Concomitant]
  12. PRO-DAFALGAN [Concomitant]
  13. GYNOPEVARYL [Concomitant]

REACTIONS (6)
  - BLOOD CREATINE PHOSPHOKINASE INCREASED [None]
  - BLOOD LACTIC ACID INCREASED [None]
  - BLOOD PYRUVIC ACID INCREASED [None]
  - HAEMANGIOMA [None]
  - HYPERTRIGLYCERIDAEMIA [None]
  - NEUTROPENIA [None]
